FAERS Safety Report 7588964-9 (Version None)
Quarter: 2011Q3

REPORT INFORMATION
  Report Type: 
  Country: None (occurrence: None)
  Receive Date: 20110705
  Receipt Date: 20110629
  Transmission Date: 20111222
  Serious: Yes (Hospitalization)
  Sender: FDA-Public Use
  Company Number: DE-SANOFI-AVENTIS-2011SA041053

PATIENT
  Age: 84 Year
  Sex: Female

DRUGS (7)
  1. ZOLPIDEM [Suspect]
     Route: 048
     Dates: start: 20110307, end: 20110307
  2. ACETYLSALICYLIC ACID SRT [Suspect]
     Route: 048
  3. METOPROLOL TARTRATE [Concomitant]
     Route: 048
  4. HYDROCHLOROTHIAZIDE [Concomitant]
     Route: 048
  5. MUCOFALK [Concomitant]
     Dosage: ONE BAG DAILY
     Route: 048
  6. VENLAFAXINE HCL [Suspect]
     Route: 048
     Dates: end: 20110301
  7. VENLAFAXINE HCL [Suspect]
     Route: 048
     Dates: start: 20110302

REACTIONS (9)
  - DIZZINESS [None]
  - OPEN WOUND [None]
  - AMNESIA [None]
  - SUBARACHNOID HAEMORRHAGE [None]
  - HEADACHE [None]
  - HAEMATOMA [None]
  - FALL [None]
  - DISORIENTATION [None]
  - CEREBRAL HAEMORRHAGE [None]
